FAERS Safety Report 6157407-4 (Version None)
Quarter: 2009Q2

REPORT INFORMATION
  Report Type: 
  Country: None (occurrence: None)
  Receive Date: 20090416
  Receipt Date: 20090408
  Transmission Date: 20091009
  Serious: Yes (Other)
  Sender: FDA-Public Use
  Company Number: CN-PFIZER INC-2009187808

PATIENT

DRUGS (1)
  1. CAMPTOSAR [Suspect]
     Indication: COLORECTAL CANCER
     Dosage: UNK
     Route: 042
     Dates: start: 20090201, end: 20090201

REACTIONS (3)
  - ABDOMINAL PAIN [None]
  - CHILLS [None]
  - THROMBOCYTOPENIC PURPURA [None]
